FAERS Safety Report 8112148-9 (Version None)
Quarter: 2012Q1

REPORT INFORMATION
  Report Type: 
  Country: None (occurrence: None)
  Receive Date: 20120203
  Receipt Date: 20120127
  Transmission Date: 20120608
  Serious: Yes (Hospitalization)
  Sender: FDA-Public Use
  Company Number: DE-PFIZER INC-2011254451

PATIENT
  Age: 74 Year
  Sex: Female
  Weight: 81 kg

DRUGS (7)
  1. TEMSIROLIMUS [Suspect]
     Indication: RENAL CELL CARCINOMA
     Dosage: 25 MG, WEEKLY
     Route: 042
     Dates: start: 20111012, end: 20111027
  2. NOVALGIN [Concomitant]
     Dosage: UNK
  3. LOPERAMIDE [Concomitant]
  4. RANITIDINE [Concomitant]
  5. ONDANSETRON [Concomitant]
  6. LORAZEPAM [Concomitant]
  7. METOCLOPRAMIDE [Concomitant]

REACTIONS (1)
  - DYSPNOEA AT REST [None]
